FAERS Safety Report 8041163 (Version 2)
Quarter: 2013Q2

REPORT INFORMATION
  Report Type: Spontaneous
  Country: US (occurrence: US)
  Receive Date: 20110718
  Receipt Date: 20130614
  Transmission Date: 20140414
  Serious: Yes (Hospitalization)
  Sender: FDA-Public Use
  Company Number: US-BIOGENIDEC-2011BI025542

PATIENT
  Age: 44 Year
  Sex: Female

DRUGS (1)
  1. TYSABRI [Suspect]
     Indication: MULTIPLE SCLEROSIS
     Route: 042
     Dates: start: 20101206

REACTIONS (4)
  - Citrobacter infection [Unknown]
  - Urinary tract infection [Unknown]
  - Escherichia infection [Not Recovered/Not Resolved]
  - Cellulitis enterococcal [Not Recovered/Not Resolved]
